FAERS Safety Report 23110011 (Version 1)
Quarter: 2023Q4

REPORT INFORMATION
  Report Type: Spontaneous
  Country: US (occurrence: None)
  Receive Date: 20231024
  Receipt Date: 20231024
  Transmission Date: 20240110
  Serious: Yes (Death, Hospitalization)
  Sender: FDA-Public Use
  Company Number: None

PATIENT
  Age: 73 Year
  Sex: Male

DRUGS (1)
  1. VICTOZA [Suspect]
     Active Substance: LIRAGLUTIDE
     Dosage: FREQUENCY : DAILY;?STRENGTH: 6MG/3ML
     Route: 058
     Dates: start: 20201130, end: 20210104

REACTIONS (2)
  - Death [None]
  - Diarrhoea [None]

NARRATIVE: CASE EVENT DATE: 20210730
